FAERS Safety Report 9696670 (Version 1)
Quarter: 2013Q4

REPORT INFORMATION
  Report Type: Spontaneous
  Country: US (occurrence: None)
  Receive Date: 20131115
  Receipt Date: 20131115
  Transmission Date: 20140711
  Serious: Yes (Life-Threatening, Hospitalization)
  Sender: FDA-Public Use
  Company Number: BACL20130015

PATIENT
  Age: 71 Year
  Sex: Female

DRUGS (1)
  1. BACLOFEN [Suspect]
     Indication: PRODUCT USED FOR UNKNOWN INDICATION
     Route: 048

REACTIONS (14)
  - Acute myocardial infarction [None]
  - Drug withdrawal syndrome [None]
  - Urinary tract infection [None]
  - Agitation [None]
  - Confusional state [None]
  - Hyperthermia [None]
  - Muscle rigidity [None]
  - Tremor [None]
  - Clonus [None]
  - Lethargy [None]
  - Hypotension [None]
  - Troponin increased [None]
  - Ventricular hypokinesia [None]
  - Therapy cessation [None]
